FAERS Safety Report 20388760 (Version 1)
Quarter: 2022Q1

REPORT INFORMATION
  Report Type: Spontaneous
  Country: US (occurrence: US)
  Receive Date: 20220128
  Receipt Date: 20220128
  Transmission Date: 20220423
  Serious: No
  Sender: FDA-Public Use
  Company Number: US-ALLERGAN-2134351US

PATIENT
  Sex: Female
  Weight: 56.689 kg

DRUGS (1)
  1. BOTOX [Suspect]
     Active Substance: ONABOTULINUMTOXINA
     Indication: Migraine
     Dosage: UNK, SINGLE
     Dates: start: 20210730, end: 20210730

REACTIONS (2)
  - Neck pain [Recovered/Resolved]
  - Muscular weakness [Not Recovered/Not Resolved]
